FAERS Safety Report 24311751 (Version 1)
Quarter: 2024Q3

REPORT INFORMATION
  Report Type: Spontaneous
  Country: US (occurrence: US)
  Receive Date: 20240912
  Receipt Date: 20240912
  Transmission Date: 20241017
  Serious: No
  Sender: BIOCON
  Company Number: US-BIOCON-BCN-2024-000063

PATIENT

DRUGS (1)
  1. EVEROLIMUS [Suspect]
     Active Substance: EVEROLIMUS
     Indication: Product used for unknown indication

REACTIONS (4)
  - Stomatitis [Unknown]
  - Product physical issue [Unknown]
  - Product substitution issue [Unknown]
  - Product taste abnormal [Unknown]
